FAERS Safety Report 9165552 (Version 1)
Quarter: 2013Q1

REPORT INFORMATION
  Report Type: Spontaneous
  Country: US (occurrence: None)
  Receive Date: 20130314
  Receipt Date: 20130314
  Transmission Date: 20140127
  Serious: Yes (Life-Threatening, Hospitalization, Disabling, Other)
  Sender: FDA-Public Use
  Company Number: None

PATIENT
  Age: 57 Year
  Sex: Male
  Weight: 97.52 kg

DRUGS (1)
  1. SIMVASTATIN [Suspect]
     Indication: BLOOD CHOLESTEROL INCREASED
     Dosage: 1/2 TAB DAILY ORAL
     Route: 048
     Dates: start: 201202, end: 201210

REACTIONS (5)
  - Unresponsive to stimuli [None]
  - Paralysis [None]
  - Muscle injury [None]
  - PO2 decreased [None]
  - Respiratory rate decreased [None]
